FAERS Safety Report 8855932 (Version 1)
Quarter: 2012Q4

REPORT INFORMATION
  Report Type: 
  Country: US (occurrence: US)
  Receive Date: 20121023
  Receipt Date: 20121023
  Transmission Date: 20130627
  Serious: No
  Sender: FDA-Public Use
  Company Number: US-AMGEN-USASP2012058920

PATIENT
  Age: 64 Year
  Sex: Male
  Weight: 104.31 kg

DRUGS (9)
  1. ENBREL [Suspect]
     Indication: PRODUCT USED FOR UNKNOWN INDICATION
     Dosage: 50 mg, seven days a week
     Route: 058
  2. OMEGA 3                            /01334101/ [Concomitant]
     Dosage: 1200 mg, UNK
  3. SIMVASTATIN [Concomitant]
     Dosage: 10 mg, UNK
  4. FOLIC ACID [Concomitant]
     Dosage: 1 mg, UNK
  5. METHOTREXATE [Concomitant]
     Dosage: 2.5 mg, UNK
  6. CALCIUM [Concomitant]
     Dosage: 500, UNK
  7. MULTIVITAMINS, PLAIN [Concomitant]
     Dosage: UNK
  8. ASPIRIN [Concomitant]
     Dosage: 81 mg, UNK
  9. ALLEGRA [Concomitant]
     Dosage: 180 mg, UNK

REACTIONS (1)
  - Bronchitis [Unknown]
